FAERS Safety Report 8890682 (Version 1)
Quarter: 2012Q4

REPORT INFORMATION
  Report Type: 
  Country: GB (occurrence: GB)
  Receive Date: 20121107
  Receipt Date: 20121107
  Transmission Date: 20130627
  Serious: Yes (Other)
  Sender: FDA-Public Use
  Company Number: GB-GLENMARK GENERICS INC.-2012GMK004282

PATIENT
  Age: 70 Year
  Sex: Male

DRUGS (1)
  1. PRAMIPEXOLE [Suspect]
     Indication: PARKINSON^S DISEASE
     Dosage: 700 ?g, tid
     Route: 048
     Dates: start: 20110726, end: 20110728

REACTIONS (1)
  - Parkinson^s disease [Recovered/Resolved]
